FAERS Safety Report 25033223 (Version 2)
Quarter: 2025Q2

REPORT INFORMATION
  Report Type: Spontaneous
  Country: DE (occurrence: DE)
  Receive Date: 20250303
  Receipt Date: 20250508
  Transmission Date: 20250717
  Serious: Yes (Hospitalization)
  Sender: ELI LILLY AND COMPANY
  Company Number: DE-ELI_LILLY_AND_COMPANY-DE202502015904

PATIENT
  Age: 31 Year
  Sex: Female
  Weight: 90 kg

DRUGS (1)
  1. MOUNJARO [Suspect]
     Active Substance: TIRZEPATIDE
     Indication: Weight control
     Dosage: 2.5MG, WEEKLY
     Route: 058
     Dates: start: 20240610, end: 20241215

REACTIONS (2)
  - Cholecystitis acute [Recovered/Resolved]
  - Cholelithiasis [Recovered/Resolved]
